FAERS Safety Report 21475606 (Version 1)
Quarter: 2022Q4

REPORT INFORMATION
  Report Type: Spontaneous
  Country: GB (occurrence: GB)
  Receive Date: 20221019
  Receipt Date: 20221019
  Transmission Date: 20230113
  Serious: Yes (Other)
  Sender: FDA-Public Use
  Company Number: GB-AUROBINDO-AUR-APL-2022-042644

PATIENT
  Age: 38 Year
  Sex: Female

DRUGS (1)
  1. DULOXETINE [Suspect]
     Active Substance: DULOXETINE
     Indication: Vestibular migraine
     Dosage: UNK
     Route: 065
     Dates: start: 20220929

REACTIONS (3)
  - Bruxism [Recovered/Resolved with Sequelae]
  - Pain in jaw [Recovered/Resolved]
  - Chills [Recovered/Resolved]
